FAERS Safety Report 25708775 (Version 3)
Quarter: 2025Q3

REPORT INFORMATION
  Report Type: Report from Study
  Country: US (occurrence: US)
  Receive Date: 20250821
  Receipt Date: 20250905
  Transmission Date: 20251021
  Serious: Yes (Life-Threatening)
  Sender: ROCHE
  Company Number: US-ROCHE-10000362067

PATIENT
  Age: 42 Year
  Sex: Female
  Weight: 104.33 kg

DRUGS (15)
  1. RITUXAN [Suspect]
     Active Substance: RITUXIMAB
     Indication: Relapsing multiple sclerosis
     Route: 065
     Dates: start: 20240620
  2. NALTREXONE [Concomitant]
     Active Substance: NALTREXONE
     Indication: Fibromyalgia
  3. LYRICA [Concomitant]
     Active Substance: PREGABALIN
     Indication: Fibromyalgia
  4. ATORVASTATIN [Concomitant]
     Active Substance: ATORVASTATIN
     Route: 048
     Dates: start: 20240616, end: 20250611
  5. EPINEPHRINE [Concomitant]
     Active Substance: EPINEPHRINE
     Route: 030
     Dates: start: 20230324
  6. NUVARING [Concomitant]
     Active Substance: ETHINYL ESTRADIOL\ETONOGESTREL
     Dosage: 0.12-
     Dates: start: 20200320
  7. FLONASE [Concomitant]
     Active Substance: FLUTICASONE PROPIONATE
     Route: 045
     Dates: start: 20180516
  8. HYDROCORTISONE [Concomitant]
     Active Substance: HYDROCORTISONE
     Dates: start: 20230324
  9. CLARITHROMYCIN [Concomitant]
     Active Substance: CLARITHROMYCIN
     Route: 048
     Dates: start: 20230330
  10. PROVIGIL [Concomitant]
     Active Substance: MODAFINIL
     Route: 048
     Dates: start: 20241119, end: 20250505
  11. NALTREXONE [Concomitant]
     Active Substance: NALTREXONE
     Route: 048
  12. PYRIDIUM [Concomitant]
     Active Substance: PHENAZOPYRIDINE
     Indication: Pain
     Route: 048
     Dates: start: 20241211
  13. LYRICA [Concomitant]
     Active Substance: PREGABALIN
     Dates: start: 20200727
  14. KESIMPTA [Concomitant]
     Active Substance: OFATUMUMAB
     Dosage: 20MG/0.4ML
     Route: 058
  15. DIAZEPAM [Concomitant]
     Active Substance: DIAZEPAM

REACTIONS (17)
  - Anaphylactic shock [Unknown]
  - Drug intolerance [Unknown]
  - Drug hypersensitivity [Unknown]
  - Coordination abnormal [Unknown]
  - Off label use [Unknown]
  - Post-traumatic stress disorder [Unknown]
  - Asthma [Unknown]
  - Hyperlipidaemia [Unknown]
  - Vitamin B12 deficiency [Unknown]
  - Asthenia [Unknown]
  - Insomnia [Unknown]
  - Platelet count increased [Unknown]
  - White blood cell count increased [Unknown]
  - Vertigo [Unknown]
  - Urinary tract infection [Unknown]
  - Throat irritation [Unknown]
  - Rash [Unknown]

NARRATIVE: CASE EVENT DATE: 20241201
